FAERS Safety Report 8043547 (Version 8)
Quarter: 2015Q1

REPORT INFORMATION
  Report Type: Spontaneous
  Country: US (occurrence: US)
  Receive Date: 20110719
  Receipt Date: 20150218
  Transmission Date: 20150721
  Serious: Yes (Life-Threatening, Hospitalization, Congenital Anomaly, Other)
  Sender: FDA-Public Use
  Company Number: US-PFIZER INC-2011158624

PATIENT
  Age: 1 Day
  Sex: Male
  Weight: 3.3 kg

DRUGS (41)
  1. EFFEXOR [Suspect]
     Active Substance: VENLAFAXINE HYDROCHLORIDE
     Indication: ANXIETY
     Dosage: UNK
     Route: 064
     Dates: start: 20090511, end: 20140703
  2. CHERATUSSIN [Concomitant]
     Indication: COUGH
     Dosage: UNK, DAILY
     Route: 064
     Dates: start: 20090929
  3. ONDANSETRON ODT [Concomitant]
     Active Substance: ONDANSETRON
     Dosage: 4 MG, DAILY
     Route: 064
     Dates: start: 20100111
  4. PROTONIX [Concomitant]
     Active Substance: PANTOPRAZOLE SODIUM
     Dosage: UNK
     Route: 064
  5. LANSOPRAZOLE. [Concomitant]
     Active Substance: LANSOPRAZOLE
     Dosage: UNK
     Route: 064
  6. PANTOPRAZOLE [Concomitant]
     Active Substance: PANTOPRAZOLE SODIUM
     Dosage: UNK
     Route: 064
  7. EXCEDRIN [Concomitant]
     Active Substance: ACETAMINOPHEN\ASPIRIN\CAFFEINE
     Dosage: UNK
     Route: 064
  8. ISOMET/DICHL/APAP [Concomitant]
     Dosage: UNK
     Route: 064
     Dates: start: 20090129
  9. ISOMET/DICHL/APAP [Concomitant]
     Dosage: UNK
     Route: 064
     Dates: start: 20090129
  10. AMOX TR-K CLV [Concomitant]
     Active Substance: AMOXICILLIN\CLAVULANATE POTASSIUM
     Dosage: UNK, DAILY
     Route: 064
     Dates: start: 20101009
  11. METOCLOPRAMIDE. [Concomitant]
     Active Substance: METOCLOPRAMIDE
     Indication: DYSPEPSIA
     Dosage: 10 MG, DAILY
     Route: 064
     Dates: start: 20091119, end: 20100702
  12. CEPHALEXIN. [Concomitant]
     Active Substance: CEPHALEXIN
     Indication: BONE CYST
     Dosage: 500 MG, DAILY
     Route: 064
     Dates: start: 20100109
  13. PHENERGAN [Concomitant]
     Active Substance: PROMETHAZINE HYDROCHLORIDE
     Dosage: UNK
     Route: 064
  14. PREVACID [Concomitant]
     Active Substance: LANSOPRAZOLE
     Dosage: 30 MG, DAILY
     Route: 064
     Dates: start: 20100517
  15. REGLAN [Concomitant]
     Active Substance: METOCLOPRAMIDE HYDROCHLORIDE
     Dosage: UNK
     Route: 064
  16. ASPIRIN. [Concomitant]
     Active Substance: ASPIRIN
     Dosage: UNK
     Route: 064
  17. TOPAMAX [Concomitant]
     Active Substance: TOPIRAMATE
     Indication: DEPRESSION
     Dosage: 25 MG, DAILY
     Route: 064
     Dates: start: 20090129
  18. AMOXICILLIN. [Concomitant]
     Active Substance: AMOXICILLIN
     Indication: ANTIBIOTIC THERAPY
     Dosage: 500 MG, DAILY
     Route: 064
     Dates: start: 20090928
  19. AUGMENTIN [Concomitant]
     Active Substance: AMOXICILLIN\CLAVULANATE POTASSIUM
     Dosage: UNK, DAILY
     Route: 064
     Dates: start: 20101009
  20. HYDROCODONE-APAP [Concomitant]
     Active Substance: ACETAMINOPHEN\HYDROCODONE
     Indication: BONE CYST
     Dosage: 5-500, DAILY
     Route: 064
     Dates: start: 20091127
  21. PROMETHAZINE [Concomitant]
     Active Substance: PROMETHAZINE\PROMETHAZINE HYDROCHLORIDE
     Indication: NAUSEA
     Dosage: 25 MG, DAILY
     Route: 064
     Dates: start: 20091202, end: 20091228
  22. IBUPROFEN. [Concomitant]
     Active Substance: IBUPROFEN
     Indication: COCCYDYNIA
     Dosage: 800 MG, DAILY
     Route: 064
     Dates: start: 20090728
  23. EFFEXOR XR [Suspect]
     Active Substance: VENLAFAXINE HYDROCHLORIDE
     Indication: DEPRESSION
     Dosage: 75 MG, 1X/DAY
     Route: 064
     Dates: start: 200804
  24. CLINDAMYCIN [Concomitant]
     Active Substance: CLINDAMYCIN\CLINDAMYCIN PHOSPHATE
     Dosage: 300 MG, DAILY
     Route: 064
     Dates: start: 20090827
  25. HYDROCODONE-APAP [Concomitant]
     Active Substance: ACETAMINOPHEN\HYDROCODONE
     Dosage: 5-500, DAILY
     Route: 064
     Dates: start: 20100201
  26. FLUOCINOLONE [Concomitant]
     Active Substance: FLUOCINOLONE
     Dosage: 0.01 % SOLUTION DAILY
     Route: 064
     Dates: start: 20100412
  27. PROZAC [Concomitant]
     Active Substance: FLUOXETINE HYDROCHLORIDE
     Dosage: UNK
     Route: 064
  28. CIPROFLOXACIN. [Concomitant]
     Active Substance: CIPROFLOXACIN
     Dosage: 500 MG, DAILY
     Route: 064
     Dates: start: 20090514
  29. VENLAFAXINE HCL [Suspect]
     Active Substance: VENLAFAXINE HYDROCHLORIDE
     Dosage: 75 MG, DAILY
     Route: 064
     Dates: start: 20090711, end: 20100906
  30. TYLENOL [Concomitant]
     Active Substance: ACETAMINOPHEN
     Indication: HEADACHE
     Dosage: 1 DF, AS NEEDED
     Route: 064
     Dates: start: 20070929
  31. CLINDAMYCIN [Concomitant]
     Active Substance: CLINDAMYCIN\CLINDAMYCIN PHOSPHATE
     Dosage: 300 MG, DAILY
     Route: 064
     Dates: start: 20100416, end: 20100424
  32. ONDANSETRON [Concomitant]
     Active Substance: ONDANSETRON
     Indication: NAUSEA
     Dosage: 4 MG, DAILY
     Route: 064
     Dates: start: 20091119
  33. KEFLEX [Concomitant]
     Active Substance: CEPHALEXIN
     Dosage: UNK
     Route: 064
  34. CHERACOL /USA/ [Concomitant]
     Indication: COUGH
     Dosage: UNK, DAILY
     Route: 064
     Dates: start: 20090929
  35. EFFEXOR [Suspect]
     Active Substance: VENLAFAXINE HYDROCHLORIDE
     Indication: DEPRESSION
  36. HYDROCODONE [Concomitant]
     Active Substance: HYDROCODONE
     Dosage: UNK
     Route: 064
  37. PAXIL [Concomitant]
     Active Substance: PAROXETINE HYDROCHLORIDE
     Dosage: UNK
     Route: 064
  38. ADVIL [Concomitant]
     Active Substance: IBUPROFEN
     Dosage: UNK
     Route: 064
  39. SALBUTAMOL SULFATE [Concomitant]
     Active Substance: ALBUTEROL SULFATE
     Dosage: 90 ?G, UNK
     Route: 064
     Dates: start: 20090928
  40. BUT/APAP/CF [Concomitant]
     Dosage: 50/325/40, DAILY
     Route: 064
     Dates: start: 20090727, end: 20100409
  41. ZOFRAN [Concomitant]
     Active Substance: ONDANSETRON HYDROCHLORIDE
     Dosage: UNK
     Route: 064

REACTIONS (14)
  - Pulmonary artery atresia [Unknown]
  - Heart disease congenital [Unknown]
  - Congenital pulmonary valve atresia [Unknown]
  - Chylothorax [Recovered/Resolved]
  - Gastrooesophageal reflux disease [Recovered/Resolved]
  - Atrial septal defect [Unknown]
  - Pulmonary valve stenosis [Unknown]
  - Enterococcal bacteraemia [Recovered/Resolved]
  - Atelectasis [Unknown]
  - Maternal exposure timing unspecified [Unknown]
  - Hypoplastic right heart syndrome [Unknown]
  - Tricuspid valve incompetence [Unknown]
  - Patent ductus arteriosus [Recovered/Resolved]
  - Otitis media [Recovering/Resolving]

NARRATIVE: CASE EVENT DATE: 20100707
